FAERS Safety Report 8009262-5 (Version None)
Quarter: 2011Q4

REPORT INFORMATION
  Report Type: 
  Country: None (occurrence: None)
  Receive Date: 20111227
  Receipt Date: 20111216
  Transmission Date: 20120403
  Serious: Yes (Hospitalization, Other)
  Sender: FDA-Public Use
  Company Number: GB-JNJFOC-20111206748

PATIENT

DRUGS (1)
  1. XARELTO [Suspect]
     Indication: KNEE OPERATION
     Route: 048

REACTIONS (4)
  - JOINT RANGE OF MOTION DECREASED [None]
  - POST PROCEDURAL HAEMATOMA [None]
  - POSTOPERATIVE WOUND INFECTION [None]
  - JOINT SWELLING [None]
